FAERS Safety Report 10214907 (Version 1)
Quarter: 2014Q2

REPORT INFORMATION
  Report Type: Spontaneous
  Country: IR (occurrence: IR)
  Receive Date: 20140603
  Receipt Date: 20140603
  Transmission Date: 20141212
  Serious: Yes (Disabling)
  Sender: FDA-Public Use
  Company Number: IR-ASTRAZENECA-2014SE38696

PATIENT
  Sex: Female
  Weight: 70 kg

DRUGS (4)
  1. SYMBICORT [Suspect]
     Indication: ASTHMA
     Dosage: 320 UG UNKNOWN FREQUENCY
     Route: 055
  2. SALBUTAMOL [Concomitant]
  3. PREDNISOLONE [Concomitant]
  4. RHINOCORT [Concomitant]

REACTIONS (1)
  - Myalgia [Unknown]
